FAERS Safety Report 4430641-7 (Version None)
Quarter: 2004Q3

REPORT INFORMATION
  Report Type: 
  Country: None (occurrence: None)
  Receive Date: 20040819
  Receipt Date: 20040819
  Transmission Date: 20050211
  Serious: Yes (Hospitalization)
  Sender: FDA-Public Use
  Company Number: None

PATIENT
  Age: 71 Year
  Sex: Male
  Weight: 97.0698 kg

DRUGS (1)
  1. DOCETAXEL 172 MG [Suspect]
     Indication: OESOPHAGEAL CARCINOMA
     Dosage: IV
     Route: 042
     Dates: start: 20040712

REACTIONS (3)
  - CHILLS [None]
  - PYREXIA [None]
  - RASH [None]
